FAERS Safety Report 4706440-5 (Version None)
Quarter: 2005Q2

REPORT INFORMATION
  Report Type: 
  Country: None (occurrence: None)
  Receive Date: 20050629
  Receipt Date: 20050615
  Transmission Date: 20051028
  Serious: Yes (Hospitalization, Other)
  Sender: FDA-Public Use
  Company Number: 2005BI012048

PATIENT
  Sex: Female

DRUGS (3)
  1. AVONEX [Suspect]
     Indication: MULTIPLE SCLEROSIS
     Dosage: IM
     Route: 030
  2. SOLU-MEDROL [Concomitant]
  3. CHEMOTHERAPY [Concomitant]

REACTIONS (3)
  - BLINDNESS [None]
  - HEART TRANSPLANT [None]
  - MULTIPLE SCLEROSIS [None]
